FAERS Safety Report 17475675 (Version 1)
Quarter: 2020Q1

REPORT INFORMATION
  Report Type: Spontaneous
  Country: CA (occurrence: CA)
  Receive Date: 20200228
  Receipt Date: 20200228
  Transmission Date: 20200409
  Serious: Yes (Other)
  Sender: FDA-Public Use
  Company Number: CA-JNJFOC-20190801306

PATIENT
  Sex: Female

DRUGS (9)
  1. PLAQUENIL                          /00072602/ [Concomitant]
     Active Substance: HYDROXYCHLOROQUINE DIPHOSPHATE
     Dates: start: 2013
  2. AMITRIPTYLINE [Concomitant]
     Active Substance: AMITRIPTYLINE
  3. CONSTELLA [Concomitant]
     Active Substance: LINACLOTIDE
  4. SIMPONI [Suspect]
     Active Substance: GOLIMUMAB
     Indication: RHEUMATOID ARTHRITIS
     Route: 058
     Dates: start: 2014, end: 2015
  5. ZOMIG [Concomitant]
     Active Substance: ZOLMITRIPTAN
  6. AERIUS                             /01009701/ [Concomitant]
     Active Substance: EBASTINE
     Indication: SEASONAL ALLERGY
  7. ZOPICLONE [Concomitant]
     Active Substance: ZOPICLONE
     Dosage: 7.5 MG 1/2 -1 TABLET
  8. VITAMIN C [Concomitant]
     Active Substance: ASCORBIC ACID
  9. REACTINE                           /00884302/ [Concomitant]
     Active Substance: CETIRIZINE HYDROCHLORIDE
     Indication: SEASONAL ALLERGY
     Route: 048

REACTIONS (3)
  - Drug ineffective [Unknown]
  - Drug hypersensitivity [Unknown]
  - Sepsis [Unknown]
